FAERS Safety Report 5139253-3 (Version None)
Quarter: 2006Q4

REPORT INFORMATION
  Report Type: 
  Country: None (occurrence: None)
  Receive Date: 20061026
  Receipt Date: 20061026
  Transmission Date: 20070319
  Serious: Yes (Other)
  Sender: FDA-Public Use
  Company Number: None

PATIENT
  Age: 86 Year
  Sex: Male
  Weight: 67.8 kg

DRUGS (1)
  1. MULTIHANCE [Suspect]
     Indication: DEMENTIA
     Dosage: 9 MLS ADINISTERED ONE TIME IV BOLUS
     Route: 040
     Dates: start: 20061018, end: 20061018

REACTIONS (2)
  - ERYTHEMA [None]
  - URTICARIA [None]
